FAERS Safety Report 4418759-6 (Version None)
Quarter: 2004Q3

REPORT INFORMATION
  Report Type: 
  Country: None (occurrence: None)
  Receive Date: 20040809
  Receipt Date: 20040108
  Transmission Date: 20050211
  Serious: No
  Sender: FDA-Public Use
  Company Number: US-GLAXOSMITHKLINE-A0491998A

PATIENT
  Age: 9 Year
  Sex: Female

DRUGS (1)
  1. PAXIL [Suspect]
     Dosage: 7.5MG PER DAY
     Route: 048

REACTIONS (2)
  - URINARY INCONTINENCE [None]
  - WEIGHT INCREASED [None]
